FAERS Safety Report 5568350-3 (Version None)
Quarter: 2007Q4

REPORT INFORMATION
  Report Type: 
  Country: None (occurrence: None)
  Receive Date: 20071220
  Receipt Date: 20071217
  Transmission Date: 20080405
  Serious: Yes (Other)
  Sender: FDA-Public Use
  Company Number: PHEH2007US13960

PATIENT
  Sex: Male

DRUGS (8)
  1. DIOVAN HCT [Suspect]
     Indication: HYPERTENSION
     Dosage: 160MG VAL/12.5MG HCT QD
  2. COREG [Suspect]
     Indication: HYPERTENSION
     Dosage: 12.5 MG, BID
  3. SOTALOL HYDROCHLORIDE [Suspect]
     Indication: HYPERTENSION
     Dosage: 80 MG, BID
  4. FOLIC ACID [Concomitant]
     Dosage: 1 MG, QD
  5. ZETIA [Concomitant]
  6. LIPITOR [Concomitant]
  7. COUMADIN [Concomitant]
  8. ASPIRIN [Concomitant]
     Dosage: 81 MG, UNK

REACTIONS (3)
  - BRADYCARDIA [None]
  - WEIGHT FLUCTUATION [None]
  - WEIGHT INCREASED [None]
